FAERS Safety Report 4800001-5 (Version None)
Quarter: 2005Q4

REPORT INFORMATION
  Report Type: 
  Country: None (occurrence: None)
  Receive Date: 20051017
  Receipt Date: 20051013
  Transmission Date: 20060501
  Serious: Yes (Death, Hospitalization, Other)
  Sender: FDA-Public Use
  Company Number: BW-BRISTOL-MYERS SQUIBB COMPANY-13143821

PATIENT
  Age: 29 Year
  Sex: Female

DRUGS (4)
  1. EFAVIRENZ [Suspect]
     Indication: HIV INFECTION
     Route: 048
     Dates: start: 20050919, end: 20051010
  2. STAVUDINE [Suspect]
     Indication: HIV INFECTION
     Route: 048
     Dates: start: 20050818, end: 20051010
  3. NEVIRAPINE [Suspect]
     Indication: HIV INFECTION
     Route: 048
     Dates: start: 20050818, end: 20050913
  4. LAMIVUDINE [Suspect]
     Indication: HIV INFECTION
     Route: 048
     Dates: start: 20050818, end: 20051010

REACTIONS (6)
  - COMA HEPATIC [None]
  - EPISTAXIS [None]
  - HAEMOLYTIC ANAEMIA [None]
  - HEPATOTOXICITY [None]
  - JAUNDICE [None]
  - MOUTH HAEMORRHAGE [None]
